FAERS Safety Report 6499849-3 (Version None)
Quarter: 2009Q4

REPORT INFORMATION
  Report Type: 
  Country: None (occurrence: None)
  Receive Date: 20091214
  Receipt Date: 20091214
  Transmission Date: 20100525
  Serious: Yes (Hospitalization)
  Sender: FDA-Public Use
  Company Number: None

PATIENT
  Age: 47 Year
  Sex: Female
  Weight: 56.6996 kg

DRUGS (1)
  1. CLARITHROMYCIN [Suspect]
     Indication: LYMPHADENITIS
     Dosage: 500MG TWICE DAILY PO
     Route: 048
     Dates: start: 20091207, end: 20091211

REACTIONS (2)
  - PARAESTHESIA [None]
  - TREMOR [None]
